FAERS Safety Report 14082436 (Version 1)
Quarter: 2017Q4

REPORT INFORMATION
  Report Type: Spontaneous
  Country: BE (occurrence: BE)
  Receive Date: 20171013
  Receipt Date: 20171013
  Transmission Date: 20180321
  Serious: Yes (Other)
  Sender: FDA-Public Use
  Company Number: BE-009507513-1710BEL005811

PATIENT
  Age: 41 Year
  Sex: Female

DRUGS (1)
  1. AERINAZE [Suspect]
     Active Substance: DESLORATADINE\PSEUDOEPHEDRINE
     Route: 048

REACTIONS (6)
  - Chills [Unknown]
  - Abdominal pain upper [Unknown]
  - Sleep disorder [Unknown]
  - Urinary retention [Unknown]
  - Dry mouth [Unknown]
  - Nausea [Unknown]

NARRATIVE: CASE EVENT DATE: 2017
